FAERS Safety Report 8924074 (Version 2)
Quarter: 2013Q1

REPORT INFORMATION
  Report Type: Report from Study
  Country: JP (occurrence: JP)
  Receive Date: 20121126
  Receipt Date: 20130325
  Transmission Date: 20140127
  Serious: Yes (Other)
  Sender: FDA-Public Use
  Company Number: JP-VERTEX PHARMACEUTICAL INC.-2012-025086

PATIENT
  Age: 54 Year
  Sex: Male

DRUGS (9)
  1. VX-950 (TELAPREVIR) [Suspect]
     Indication: CHRONIC HEPATITIS C
     Dosage: 2250 MG, QD
     Route: 048
     Dates: start: 20120418, end: 20120710
  2. RIBAVIRIN [Suspect]
     Indication: CHRONIC HEPATITIS C
     Dosage: 400 MG, QD
     Route: 048
     Dates: start: 20120418, end: 20120430
  3. RIBAVIRIN [Suspect]
     Dosage: 200 MG, QD
     Route: 048
     Dates: start: 20120501, end: 20120619
  4. RIBAVIRIN [Suspect]
     Dosage: 400 MG, QD
     Route: 048
     Dates: start: 20120620, end: 20120703
  5. RIBAVIRIN [Suspect]
     Dosage: 200 MG, QD
     Route: 048
     Dates: start: 20120704, end: 20121002
  6. PEGINTRON [Suspect]
     Indication: CHRONIC HEPATITIS C
     Dosage: 0.95 ?G/KG, QW
     Route: 058
     Dates: start: 20120418, end: 20120508
  7. PEGINTRON [Suspect]
     Dosage: 0.86 ?G/KG, QW
     Route: 058
     Dates: start: 20120509
  8. PEGINTRON [Suspect]
     Dosage: 0.78 ?G/KG, QW
     Route: 058
     Dates: end: 20120822
  9. PEGINTRON [Suspect]
     Dosage: 0.78 ?G/KG, QW
     Route: 058
     Dates: start: 20120912, end: 20120926

REACTIONS (1)
  - Herpes zoster [Recovered/Resolved]
